FAERS Safety Report 7201522-0 (Version None)
Quarter: 2010Q4

REPORT INFORMATION
  Report Type: 
  Country: None (occurrence: None)
  Receive Date: 20101216
  Receipt Date: 20101207
  Transmission Date: 20110411
  Serious: Yes (Hospitalization, Other)
  Sender: FDA-Public Use
  Company Number: 2010US004653

PATIENT
  Age: 61 Year
  Sex: Male
  Weight: 84 kg

DRUGS (9)
  1. PROGRAF [Suspect]
     Indication: LIVER TRANSPLANT
     Dosage: 1 MG, BID, ORAL;  2MG, BID, ORAL
     Route: 048
     Dates: start: 19960627
  2. INSULIN (INSULIN) [Concomitant]
  3. RIFAXIMIN (RIFAXIMIN) [Concomitant]
  4. CELLCEPT [Concomitant]
  5. LOPRESSOR [Concomitant]
  6. CELEXA [Concomitant]
  7. LANTS (INSULIN GLARGINE) [Concomitant]
  8. ASPIRIN [Concomitant]
  9. MAGNESIUM OXIDE (MAGNSEIUM OXIDE) [Concomitant]

REACTIONS (12)
  - CHOLECYSTECTOMY [None]
  - DIABETES MELLITUS INADEQUATE CONTROL [None]
  - DIABETIC NEPHROPATHY [None]
  - DIABETIC NEUROPATHY [None]
  - GAIT DISTURBANCE [None]
  - HAEMORRHOID OPERATION [None]
  - HEPATITIS C [None]
  - HIV INFECTION [None]
  - HYPERTENSION [None]
  - MAJOR DEPRESSION [None]
  - RENAL FAILURE CHRONIC [None]
  - SYPHILIS [None]
